FAERS Safety Report 8923689 (Version 2)
Quarter: 2012Q4

REPORT INFORMATION
  Report Type: Spontaneous
  Country: AU (occurrence: None)
  Receive Date: 20121115
  Receipt Date: 20121130
  Transmission Date: 20130627
  Serious: Yes (Hospitalization)
  Sender: FDA-Public Use
  Company Number: 1483418

PATIENT
  Sex: Female

DRUGS (10)
  1. CEFAZOLIN [Suspect]
     Indication: DRUG USE FOR UNKNOWN INDICATION
  2. FENTANYL CITRATE [Suspect]
     Indication: DRUG USE FOR UNKNOWN INDICATION
  3. MIDAZOLAM [Suspect]
     Indication: DRUG USE FOR UNKNOWN INDICATION
  4. GENTAMICIN [Suspect]
     Indication: DRUG USE FOR UNKNOWN INDICATION
     Route: 048
  5. GRANISETRON [Suspect]
     Indication: DRUG USE FOR UNKNOWN INDICATION
  6. PROPOFOL [Suspect]
     Indication: DRUG USE FOR UNKNOWN INDICATION
  7. ROCURONIUM BROMIDE [Suspect]
     Indication: DRUG USE FOR UNKNOWN INDICATION
  8. COVERSYL /00790702/ [Concomitant]
  9. GLICLAZIDE [Concomitant]
  10. METFORMIN HYDROCHLORIDE [Concomitant]

REACTIONS (10)
  - Urosepsis [None]
  - Multi-organ failure [None]
  - Hyperthermia malignant [None]
  - Heart rate increased [None]
  - Blood pressure systolic increased [None]
  - Fluid overload [None]
  - Electrolyte imbalance [None]
  - Dialysis [None]
  - Haemorrhage [None]
  - Serotonin syndrome [None]
